FAERS Safety Report 25361319 (Version 1)
Quarter: 2025Q2

REPORT INFORMATION
  Report Type: Spontaneous
  Country: JP (occurrence: JP)
  Receive Date: 20250527
  Receipt Date: 20250527
  Transmission Date: 20250716
  Serious: Yes (Other)
  Sender: BIOLOGICAL E. LIMITED
  Company Number: JP-BELUSA-2025BELLIT0030

PATIENT

DRUGS (1)
  1. HEPARIN SODIUM [Suspect]
     Active Substance: HEPARIN SODIUM
     Indication: Cerebral infarction

REACTIONS (3)
  - Respiratory arrest [Unknown]
  - Seizure [Unknown]
  - Heparin-induced thrombocytopenia [Recovering/Resolving]
